FAERS Safety Report 6111699-6 (Version None)
Quarter: 2009Q1

REPORT INFORMATION
  Report Type: 
  Country: None (occurrence: None)
  Receive Date: 20090310
  Receipt Date: 20090310
  Transmission Date: 20090719
  Serious: Yes (Other)
  Sender: FDA-Public Use
  Company Number: None

PATIENT
  Age: 75 Year
  Sex: Female
  Weight: 68.0396 kg

DRUGS (2)
  1. ELOXATIN [Suspect]
     Indication: COLON CANCER
     Dosage: 170 MG EVERY 3 WEEKS IV
     Route: 042
     Dates: start: 20080217, end: 20090303
  2. LEUCOVORIN 670 MG GENERIC [Suspect]
     Dosage: 670 MG EVERY 3 WEEKS IV
     Route: 042

REACTIONS (2)
  - NAUSEA [None]
  - VOMITING [None]
